FAERS Safety Report 9195136 (Version 1)
Quarter: 2013Q1

REPORT INFORMATION
  Report Type: Spontaneous
  Country: US (occurrence: US)
  Receive Date: 20130328
  Receipt Date: 20130328
  Transmission Date: 20140127
  Serious: No
  Sender: FDA-Public Use
  Company Number: US-ALLERGAN-1207217US

PATIENT
  Age: 88 Year
  Sex: Male

DRUGS (2)
  1. COMBIGAN [Suspect]
     Indication: GLAUCOMA
     Dosage: BID OU
     Route: 047
     Dates: start: 201112
  2. LUMIGAN [Suspect]
     Indication: GLAUCOMA
     Dosage: UNK
     Route: 047
     Dates: start: 201107

REACTIONS (3)
  - Intraocular pressure increased [Unknown]
  - Vision blurred [Unknown]
  - Vision blurred [Unknown]
